FAERS Safety Report 7554506-7 (Version None)
Quarter: 2011Q2

REPORT INFORMATION
  Report Type: 
  Country: None (occurrence: None)
  Receive Date: 20110617
  Receipt Date: 20110609
  Transmission Date: 20111010
  Serious: Yes (Hospitalization)
  Sender: FDA-Public Use
  Company Number: B0725036A

PATIENT
  Sex: Female

DRUGS (8)
  1. ARIXTRA [Suspect]
     Indication: PULMONARY EMBOLISM
     Dosage: 7.5MG PER DAY
     Route: 058
     Dates: start: 20101201, end: 20110416
  2. ACETAMINOPHEN [Concomitant]
     Route: 065
  3. NAFTILUX [Concomitant]
     Route: 065
  4. EXTENCILLINE [Suspect]
     Indication: ERYSIPELAS
     Dosage: 2.4MU MONTHLY
     Route: 030
     Dates: start: 20101001, end: 20110407
  5. ATARAX [Concomitant]
     Route: 065
  6. HYTACAND [Concomitant]
     Dosage: 1UNIT PER DAY
     Route: 065
  7. CHLORHYDRATE DE TRAMADOL [Concomitant]
     Route: 065
  8. PANTOPRAZOLE [Concomitant]
     Route: 065

REACTIONS (7)
  - PYREXIA [None]
  - HAEMATOMA INFECTION [None]
  - DRUG LEVEL INCREASED [None]
  - MOBILITY DECREASED [None]
  - ANAEMIA [None]
  - LEUKOCYTOSIS [None]
  - INCORRECT DRUG ADMINISTRATION DURATION [None]
